FAERS Safety Report 16599086 (Version 1)
Quarter: 2019Q3

REPORT INFORMATION
  Report Type: Spontaneous
  Country: CA (occurrence: US)
  Receive Date: 20190719
  Receipt Date: 20190719
  Transmission Date: 20191004
  Serious: No
  Sender: FDA-Public Use
  Company Number: CA-GLAXOSMITHKLINE-US2019129732

PATIENT
  Age: 22 Year
  Sex: Female

DRUGS (1)
  1. ABREVA [Suspect]
     Active Substance: DOCOSANOL
     Indication: ORAL HERPES
     Dosage: 1 DF, UNK( 4 TO 5 TIMES)
     Route: 062
     Dates: start: 20190712, end: 20190715

REACTIONS (3)
  - Condition aggravated [Recovered/Resolved]
  - Oral herpes [Recovered/Resolved]
  - Inappropriate schedule of product administration [Unknown]

NARRATIVE: CASE EVENT DATE: 20190712
